FAERS Safety Report 6246134-0 (Version None)
Quarter: 2009Q2

REPORT INFORMATION
  Report Type: 
  Country: None (occurrence: None)
  Receive Date: 20090626
  Receipt Date: 20090331
  Transmission Date: 20091009
  Serious: No
  Sender: FDA-Public Use
  Company Number: A0776408A

PATIENT
  Age: 55 Year
  Sex: Male

DRUGS (2)
  1. IMITREX [Suspect]
     Indication: MIGRAINE
     Dosage: 100MG AS REQUIRED
     Route: 048
     Dates: start: 20040101, end: 20081201
  2. TOPROL-XL [Concomitant]

REACTIONS (1)
  - DRUG INEFFECTIVE [None]
